FAERS Safety Report 4520189-3 (Version None)
Quarter: 2004Q4

REPORT INFORMATION
  Report Type: 
  Country: None (occurrence: None)
  Receive Date: 20041028
  Receipt Date: 20040630
  Transmission Date: 20050328
  Serious: Yes (Hospitalization)
  Sender: FDA-Public Use
  Company Number: 04P-163-0265510-00

PATIENT
  Sex: Female

DRUGS (1)
  1. TARKA [Suspect]

REACTIONS (1)
  - CONSTIPATION [None]
